FAERS Safety Report 6765321-6 (Version None)
Quarter: 2010Q2

REPORT INFORMATION
  Report Type: 
  Country: None (occurrence: None)
  Receive Date: 20100611
  Receipt Date: 20100527
  Transmission Date: 20101027
  Serious: Yes (Other)
  Sender: FDA-Public Use
  Company Number: PHHY2010AU37434

PATIENT

DRUGS (2)
  1. TASIGNA [Suspect]
     Indication: CHRONIC MYELOID LEUKAEMIA
     Dosage: 200 MG, BID
     Route: 048
     Dates: start: 20090801
  2. TASIGNA [Suspect]
     Dosage: 100 MG, BID
     Route: 048

REACTIONS (3)
  - ASPIRATION PLEURAL CAVITY [None]
  - CARDIAC DISORDER [None]
  - PULMONARY OEDEMA [None]
